FAERS Safety Report 7637986-8 (Version None)
Quarter: 2011Q3

REPORT INFORMATION
  Report Type: 
  Country: None (occurrence: None)
  Receive Date: 20110722
  Receipt Date: 20110722
  Transmission Date: 20111222
  Serious: Yes (Life-Threatening, Hospitalization)
  Sender: FDA-Public Use
  Company Number: None

PATIENT
  Age: 41 Year
  Sex: Female

DRUGS (1)
  1. CHLORDIAZEPOXIDE HCL AND CLIDINIUM BROMIDE [Suspect]
     Indication: IRRITABLE BOWEL SYNDROME
     Dosage: ONE CAPSULE TID PO
     Route: 048
     Dates: start: 20101102, end: 20110627

REACTIONS (1)
  - VARICELLA [None]
